FAERS Safety Report 5206945-7 (Version None)
Quarter: 2007Q1

REPORT INFORMATION
  Report Type: 
  Country: None (occurrence: None)
  Receive Date: 20070112
  Receipt Date: 20070103
  Transmission Date: 20070707
  Serious: Yes (Hospitalization, Other)
  Sender: FDA-Public Use
  Company Number: GB-JNJFOC-20070100480

PATIENT
  Sex: Female
  Weight: 58 kg

DRUGS (8)
  1. REMICADE [Suspect]
     Indication: RHEUMATOID ARTHRITIS
     Route: 042
  2. METHOTREXATE [Concomitant]
     Route: 065
  3. PREDNISOLONE [Concomitant]
     Route: 065
  4. FOLIC ACID [Concomitant]
     Route: 065
  5. SULFASALAZINE [Concomitant]
     Route: 065
  6. SANDOCAL [Concomitant]
     Route: 065
  7. VOLTAREN [Concomitant]
     Route: 065
  8. ACETAMINOPHEN [Concomitant]
     Route: 065

REACTIONS (5)
  - BRAIN ABSCESS [None]
  - CEREBRAL INFARCTION [None]
  - INTERVERTEBRAL DISCITIS [None]
  - PSOAS ABSCESS [None]
  - SEPSIS [None]
